FAERS Safety Report 7043702-3 (Version None)
Quarter: 2010Q3

REPORT INFORMATION
  Report Type: 
  Country: None (occurrence: None)
  Receive Date: 20100929
  Receipt Date: 20100708
  Transmission Date: 20110219
  Serious: No
  Sender: FDA-Public Use
  Company Number: US-WYE-H16042510

PATIENT
  Age: 49 Year
  Sex: Female
  Weight: 61.29 kg

DRUGS (3)
  1. PRISTIQ [Suspect]
     Indication: MAJOR DEPRESSION
     Dosage: 50 MG 1X PER 1 DAY, ORAL
     Route: 048
     Dates: start: 20100703, end: 20100708
  2. SYNTHROID [Concomitant]
  3. ALPRAZOLAM [Concomitant]

REACTIONS (4)
  - CONDITION AGGRAVATED [None]
  - HYPERSENSITIVITY [None]
  - LIP SWELLING [None]
  - MIGRAINE [None]
